FAERS Safety Report 12088302 (Version 1)
Quarter: 2016Q1

REPORT INFORMATION
  Report Type: Spontaneous
  Country: US (occurrence: None)
  Receive Date: 20160216
  Receipt Date: 20160216
  Transmission Date: 20160526
  Serious: Yes (Other)
  Sender: FDA-Public Use
  Company Number: None

PATIENT
  Age: 73 Year
  Sex: Female
  Weight: 104.33 kg

DRUGS (4)
  1. ARM + HAMMER COMPLETE CARE TOOTHPASTE ARM + HAMMER [Suspect]
     Active Substance: SODIUM FLUORIDE
     Indication: DENTAL CARE
     Dosage: TWICE DAILY BRUSHING TEETH
     Route: 002
  2. PAROXETINE [Concomitant]
     Active Substance: PAROXETINE\PAROXETINE HYDROCHLORIDE
  3. LEVOXYL [Concomitant]
     Active Substance: LEVOTHYROXINE SODIUM
  4. IBUPROFEN. [Concomitant]
     Active Substance: IBUPROFEN

REACTIONS (11)
  - Stomatitis [None]
  - Lip swelling [None]
  - Lip ulceration [None]
  - Lip pain [None]
  - Lip blister [None]
  - Oral mucosal blistering [None]
  - Chemical burn of gastrointestinal tract [None]
  - Mouth swelling [None]
  - Chapped lips [None]
  - Oral pain [None]
  - Deformity [None]

NARRATIVE: CASE EVENT DATE: 20140601
